FAERS Safety Report 9051521 (Version 2)
Quarter: 2013Q1

REPORT INFORMATION
  Report Type: Spontaneous
  Country: US (occurrence: US)
  Receive Date: 20130207
  Receipt Date: 20130227
  Transmission Date: 20140127
  Serious: Yes (Other)
  Sender: FDA-Public Use
  Company Number: US-AMGEN-USASP2012059209

PATIENT
  Age: 34 Year
  Sex: Female

DRUGS (1)
  1. PROCRIT [Suspect]
     Indication: NEPHROGENIC ANAEMIA
     Dosage: 25000 UNIT, 3 TIMES/WK
     Route: 042
     Dates: start: 20110223, end: 20120731

REACTIONS (2)
  - Aplasia pure red cell [Unknown]
  - Drug ineffective [Unknown]
